FAERS Safety Report 13700491 (Version 1)
Quarter: 2017Q2

REPORT INFORMATION
  Report Type: Spontaneous
  Country: IT (occurrence: IT)
  Receive Date: 20170629
  Receipt Date: 20170629
  Transmission Date: 20170830
  Serious: Yes (Other)
  Sender: FDA-Public Use
  Company Number: IT-ASTRAZENECA-2017SE66720

PATIENT
  Age: 66 Year
  Sex: Female

DRUGS (6)
  1. ALIMTA [Concomitant]
     Active Substance: PEMETREXED DISODIUM
  2. FOLINGRAV [Concomitant]
     Dosage: 1DF, DIE
  3. CARBOPLATIN. [Concomitant]
     Active Substance: CARBOPLATIN
  4. TAGRISSO [Suspect]
     Active Substance: OSIMERTINIB
     Indication: LUNG ADENOCARCINOMA
     Route: 048
  5. IRESSA [Suspect]
     Active Substance: GEFITINIB
     Indication: LUNG ADENOCARCINOMA
     Route: 048
  6. DOBETIN [Concomitant]
     Active Substance: CYANOCOBALAMIN
     Dosage: 1000 MG
     Route: 030

REACTIONS (1)
  - Malignant neoplasm progression [Unknown]
